FAERS Safety Report 20012727 (Version 1)
Quarter: 2021Q4

REPORT INFORMATION
  Report Type: Spontaneous
  Country: US (occurrence: US)
  Receive Date: 20211029
  Receipt Date: 20211029
  Transmission Date: 20220303
  Serious: No
  Sender: FDA-Public Use
  Company Number: US-EISAI MEDICAL RESEARCH-EC-2021-101910

PATIENT
  Age: 11 Year
  Sex: Male

DRUGS (3)
  1. LENVIMA [Suspect]
     Active Substance: LENVATINIB
     Indication: Hepatoblastoma recurrent
     Route: 048
  2. LENVIMA [Suspect]
     Active Substance: LENVATINIB
     Dosage: 20% DOSE REDUCTION (DOSE AND FREQUENCY UNKNOWN)
     Route: 048
  3. LENVIMA [Suspect]
     Active Substance: LENVATINIB
     Dosage: ALTERNATE DOSING REGIMENS WERE TRIALED SUCH AS EVERY OTHER DAY DOSING OR A WEEK ON AND WEEK OFF
     Route: 048

REACTIONS (3)
  - Bone pain [Unknown]
  - Hypothyroidism [Unknown]
  - Product use in unapproved indication [Unknown]
